FAERS Safety Report 7472152-0 (Version None)
Quarter: 2011Q2

REPORT INFORMATION
  Report Type: 
  Country: None (occurrence: None)
  Receive Date: 20110511
  Receipt Date: 20110124
  Transmission Date: 20111010
  Serious: No
  Sender: FDA-Public Use
  Company Number: A0910374A

PATIENT
  Sex: Female

DRUGS (1)
  1. TYKERB [Suspect]
     Dosage: 1250MG AT NIGHT
     Dates: start: 20101227

REACTIONS (4)
  - MENSTRUAL DISORDER [None]
  - SKIN REACTION [None]
  - DERMATITIS ACNEIFORM [None]
  - ABDOMINAL DISCOMFORT [None]
